FAERS Safety Report 6356254-8 (Version None)
Quarter: 2009Q3

REPORT INFORMATION
  Report Type: 
  Country: None (occurrence: None)
  Receive Date: 20090915
  Receipt Date: 20090909
  Transmission Date: 20100115
  Serious: Yes (Death, Hospitalization)
  Sender: FDA-Public Use
  Company Number: AT-CELGENEUS-009-21880-09090605

PATIENT
  Sex: Male
  Weight: 75 kg

DRUGS (2)
  1. REVLIMID [Suspect]
     Route: 048
     Dates: start: 20080430, end: 20080602
  2. FORTECORTIN [Concomitant]
     Route: 065
     Dates: start: 20080430, end: 20080602

REACTIONS (6)
  - DEATH [None]
  - FALL [None]
  - LOSS OF CONSCIOUSNESS [None]
  - PAIN [None]
  - PNEUMOCYSTIS JIROVECI PNEUMONIA [None]
  - PYREXIA [None]
